FAERS Safety Report 6931284-3 (Version None)
Quarter: 2010Q3

REPORT INFORMATION
  Report Type: 
  Country: None (occurrence: None)
  Receive Date: 20100818
  Receipt Date: 20100804
  Transmission Date: 20110219
  Serious: Yes (Other)
  Sender: FDA-Public Use
  Company Number: DE-ABBOTT-10P-062-0635457-00

PATIENT
  Sex: Male
  Weight: 68 kg

DRUGS (9)
  1. KALETRA [Suspect]
     Indication: HIV INFECTION
     Dosage: 200/50 2X2 PER DAY
     Dates: start: 20091027, end: 20100225
  2. KALETRA [Suspect]
     Dates: start: 20090701, end: 20090902
  3. KALETRA [Suspect]
     Dates: start: 20061201, end: 20070301
  4. TRUVADA [Concomitant]
     Indication: HIV INFECTION
     Dosage: 200/245
     Dates: start: 20091027, end: 20100225
  5. COTRIM [Concomitant]
     Indication: ANTIFUNGAL PROPHYLAXIS
     Route: 048
  6. ISENTRESS [Concomitant]
     Indication: ANTIRETROVIRAL THERAPY
     Dates: start: 20100225
  7. ABACAVIR SULFATE AND LAMIVUDINE [Concomitant]
     Indication: ANTIRETROVIRAL THERAPY
     Dates: start: 20100225
  8. PSYCHOTROPICS [Concomitant]
     Indication: DEPRESSION
  9. PSYCHOTROPICS [Concomitant]
     Indication: ALCOHOL ABUSE

REACTIONS (2)
  - APLASTIC ANAEMIA [None]
  - EYE DISORDER [None]
